FAERS Safety Report 8445303-9 (Version None)
Quarter: 2012Q2

REPORT INFORMATION
  Report Type: 
  Country: None (occurrence: None)
  Receive Date: 20120612
  Receipt Date: 20120612
  Transmission Date: 20120825
  Serious: No
  Sender: FDA-Public Use
  Company Number: None

PATIENT
  Sex: Female

DRUGS (1)
  1. CIPROFLOXACIN [Suspect]
     Indication: LIPOSUCTION
     Dosage: 500 MG TWICE A DAY PO
     Route: 048
     Dates: start: 20120505, end: 20120515

REACTIONS (4)
  - HEADACHE [None]
  - ARTHRALGIA [None]
  - HYPERTENSION [None]
  - NAUSEA [None]
